FAERS Safety Report 25907896 (Version 1)
Quarter: 2025Q4

REPORT INFORMATION
  Report Type: Spontaneous
  Country: US (occurrence: US)
  Receive Date: 20251010
  Receipt Date: 20251010
  Transmission Date: 20260117
  Serious: No
  Sender: PFIZER
  Company Number: US-PFIZER INC-202500198642

PATIENT
  Age: 14 Year
  Sex: Male

DRUGS (2)
  1. SOMATROGON [Suspect]
     Active Substance: SOMATROGON
     Dosage: .66 MG / KG / WK
     Dates: start: 202410
  2. ABILIFY [Concomitant]
     Active Substance: ARIPIPRAZOLE
     Indication: Mental disorder

REACTIONS (1)
  - Therapeutic product effect incomplete [Unknown]

NARRATIVE: CASE EVENT DATE: 20250601
